FAERS Safety Report 4562247-3 (Version None)
Quarter: 2005Q1

REPORT INFORMATION
  Report Type: 
  Country: None (occurrence: None)
  Receive Date: 20050121
  Receipt Date: 20041214
  Transmission Date: 20050727
  Serious: Yes (Hospitalization)
  Sender: FDA-Public Use
  Company Number: US_0501109887

PATIENT
  Age: 44 Year
  Sex: Male

DRUGS (40)
  1. ZYPREXA [Suspect]
     Indication: PSYCHOTIC DISORDER
     Dosage: 5 MG DAY
     Dates: start: 20030513, end: 20040316
  2. VIOXX [Concomitant]
  3. HYDROCODONE W/APAP [Concomitant]
  4. TRAMADOL HCL [Concomitant]
  5. PREDNISOLONE [Concomitant]
  6. PEDIAPRED (PREDNISOLONE SODIUM PHOSPHATE) [Concomitant]
  7. NEXIUM [Concomitant]
  8. SONATA [Concomitant]
  9. HYDROCHLOROTHIAZIDE [Concomitant]
  10. TOPROL-XL [Concomitant]
  11. ATENOLOL CHLORTHALIDONE ^BIOCHEMIE^ [Concomitant]
  12. AMBIEN [Concomitant]
  13. CEPHALEXIN [Concomitant]
  14. KLOR-CON M (POTASSIUM CHLORIDE) [Concomitant]
  15. FUROSEMIDE (FUROSEMIDE) [Concomitant]
  16. MEPERIDINE W/PROMETHAZINE [Concomitant]
  17. PRELONE (PREDNISOLONE) [Concomitant]
  18. LIDOCAINE [Concomitant]
  19. ADVAIR DISKUS 100/50 [Concomitant]
  20. LOTRISONE [Concomitant]
  21. AMOXICILLIN TRIHYDRATE [Concomitant]
  22. BEXTRA [Concomitant]
  23. MOBIC [Concomitant]
  24. DIFLUCAN [Concomitant]
  25. LEVAQUIN [Concomitant]
  26. AZATHIOPRINE [Concomitant]
  27. COLCHICINE [Concomitant]
  28. TOPROL-XL [Concomitant]
  29. SONATA [Concomitant]
  30. ULTRAM [Concomitant]
  31. K-DUR 10 [Concomitant]
  32. LEVAQUIN [Concomitant]
  33. LASIX [Concomitant]
  34. MEPERGAN FORTIS [Concomitant]
  35. REMICADE [Concomitant]
  36. ADVAIR DISKUS 100/50 [Concomitant]
  37. TENORETIC 100 [Concomitant]
  38. CIALIS [Concomitant]
  39. GLUCOTROL [Concomitant]
  40. ZYRTEC [Concomitant]

REACTIONS (20)
  - ALANINE AMINOTRANSFERASE INCREASED [None]
  - ASPARTATE AMINOTRANSFERASE INCREASED [None]
  - ASTHMA [None]
  - BEHCET'S SYNDROME [None]
  - BLOOD TRIGLYCERIDES INCREASED [None]
  - CONDITION AGGRAVATED [None]
  - DEHYDRATION [None]
  - DIABETES MELLITUS [None]
  - DYSPNOEA AT REST [None]
  - ERECTILE DYSFUNCTION [None]
  - INTERSTITIAL LUNG DISEASE [None]
  - MYOCARDIAL INFARCTION [None]
  - NAUSEA [None]
  - OEDEMA PERIPHERAL [None]
  - PAIN [None]
  - PNEUMONITIS [None]
  - RASH [None]
  - SLEEP APNOEA SYNDROME [None]
  - VASCULITIS [None]
  - VOMITING [None]
